FAERS Safety Report 13327969 (Version 3)
Quarter: 2017Q2

REPORT INFORMATION
  Report Type: Spontaneous
  Country: DK (occurrence: DK)
  Receive Date: 20170313
  Receipt Date: 20170501
  Transmission Date: 20170830
  Serious: Yes (Life-Threatening, Hospitalization)
  Sender: FDA-Public Use
  Company Number: DK-ROCHE-1905597

PATIENT
  Sex: Female

DRUGS (7)
  1. THEO-DUR [Concomitant]
     Active Substance: THEOPHYLLINE ANHYDROUS
     Indication: PRODUCT USED FOR UNKNOWN INDICATION
     Route: 065
  2. XOLAIR [Suspect]
     Active Substance: OMALIZUMAB
     Indication: ASTHMA
     Route: 058
  3. SPIRIVA [Concomitant]
     Active Substance: TIOTROPIUM BROMIDE MONOHYDRATE
     Indication: PRODUCT USED FOR UNKNOWN INDICATION
     Dosage: (TWO DRAGS IN THE MORNING)
     Route: 065
  4. SPIROCORT [Concomitant]
     Active Substance: BUDESONIDE
     Indication: PRODUCT USED FOR UNKNOWN INDICATION
     Route: 065
  5. ALVESCO [Concomitant]
     Active Substance: CICLESONIDE
     Indication: PRODUCT USED FOR UNKNOWN INDICATION
     Dosage: (ONE DRAG IN THE MORNING)
     Route: 065
  6. MONTELUKAST [Concomitant]
     Active Substance: MONTELUKAST SODIUM
     Indication: PRODUCT USED FOR UNKNOWN INDICATION
     Route: 065
  7. XOLAIR [Suspect]
     Active Substance: OMALIZUMAB
     Route: 058

REACTIONS (4)
  - Anaphylactic reaction [Recovering/Resolving]
  - Stridor [Recovering/Resolving]
  - Hypersensitivity [Recovering/Resolving]
  - Vocal cord disorder [Recovering/Resolving]
